FAERS Safety Report 17311710 (Version 1)
Quarter: 2020Q1

REPORT INFORMATION
  Report Type: Spontaneous
  Country: US (occurrence: US)
  Receive Date: 20200123
  Receipt Date: 20200123
  Transmission Date: 20200409
  Serious: No
  Sender: FDA-Public Use
  Company Number: US-ROCHE-2456854

PATIENT
  Sex: Male

DRUGS (1)
  1. RITUXAN [Suspect]
     Active Substance: RITUXIMAB
     Indication: CHRONIC LYMPHOCYTIC LEUKAEMIA
     Dosage: 10 MG AND THE QUANTITY WAS 70
     Route: 065
     Dates: start: 20190613, end: 201907

REACTIONS (8)
  - Vertigo [Recovered/Resolved]
  - Skin abrasion [Recovering/Resolving]
  - Contusion [Unknown]
  - Fall [Unknown]
  - Vision blurred [Recovering/Resolving]
  - Tremor [Recovering/Resolving]
  - Off label use [Unknown]
  - Intentional product use issue [Unknown]
